FAERS Safety Report 12569704 (Version 1)
Quarter: 2016Q3

REPORT INFORMATION
  Report Type: Spontaneous
  Country: US (occurrence: None)
  Receive Date: 20160718
  Receipt Date: 20160718
  Transmission Date: 20161109
  Serious: Yes (Disabling)
  Sender: FDA-Public Use
  Company Number: None

PATIENT
  Age: 28 Year
  Sex: Male
  Weight: 95.26 kg

DRUGS (3)
  1. PROPECIA [Suspect]
     Active Substance: FINASTERIDE
     Indication: ANDROGENETIC ALOPECIA
     Route: 048
     Dates: start: 20080601, end: 20120930
  2. AMPHETAMINE MIXED-SALTS [Concomitant]
  3. TADALAFIL [Concomitant]
     Active Substance: TADALAFIL

REACTIONS (8)
  - Erectile dysfunction [None]
  - Semen volume decreased [None]
  - Organic erectile dysfunction [None]
  - Scrotal disorder [None]
  - Secondary hypogonadism [None]
  - Libido decreased [None]
  - Dizziness [None]
  - Lethargy [None]

NARRATIVE: CASE EVENT DATE: 20120201
